FAERS Safety Report 22772964 (Version 4)
Quarter: 2024Q2

REPORT INFORMATION
  Report Type: Spontaneous
  Country: US (occurrence: US)
  Receive Date: 20230801
  Receipt Date: 20240522
  Transmission Date: 20240716
  Serious: Yes (Death, Hospitalization)
  Sender: FDA-Public Use
  Company Number: US-PFIZER INC-202300236082

PATIENT
  Age: 82 Year
  Sex: Male
  Weight: 68.04 kg

DRUGS (2)
  1. VYNDAMAX [Suspect]
     Active Substance: TAFAMIDIS
     Indication: Amyloidosis
     Dosage: 61 MG, 1X/DAY
     Route: 048
     Dates: start: 202301
  2. VYNDAMAX [Suspect]
     Active Substance: TAFAMIDIS
     Indication: Acquired ATTR amyloidosis

REACTIONS (4)
  - Death [Fatal]
  - Cardioversion [Unknown]
  - Aspiration pleural cavity [Unknown]
  - Pneumocentesis [Unknown]

NARRATIVE: CASE EVENT DATE: 20240501
